FAERS Safety Report 13043028 (Version 3)
Quarter: 2017Q1

REPORT INFORMATION
  Report Type: Spontaneous
  Country: JP (occurrence: JP)
  Receive Date: 20161219
  Receipt Date: 20170206
  Transmission Date: 20170428
  Serious: Yes (Other)
  Sender: FDA-Public Use
  Company Number: JP-PFIZER INC-2016578776

PATIENT
  Age: 57 Year
  Sex: Female

DRUGS (1)
  1. IRINOTECAN HCL [Suspect]
     Active Substance: IRINOTECAN HYDROCHLORIDE
     Indication: OVARIAN CANCER STAGE III
     Dosage: 60 MG/M2, WEEKLY

REACTIONS (3)
  - Pneumatosis intestinalis [Recovered/Resolved]
  - Septic shock [Unknown]
  - Portal venous gas [Recovered/Resolved]
